FAERS Safety Report 23045431 (Version 1)
Quarter: 2023Q4

REPORT INFORMATION
  Report Type: Spontaneous
  Country: FR (occurrence: FR)
  Receive Date: 20231009
  Receipt Date: 20231009
  Transmission Date: 20240110
  Serious: Yes (Hospitalization)
  Sender: FDA-Public Use
  Company Number: None

PATIENT
  Age: 15 Year
  Sex: Female

DRUGS (2)
  1. DIAZEPAM [Suspect]
     Active Substance: DIAZEPAM
     Indication: Product used for unknown indication
     Route: 050
     Dates: start: 20170101
  2. BROMAZEPAM [Suspect]
     Active Substance: BROMAZEPAM
     Indication: Product used for unknown indication
     Route: 050
     Dates: start: 20170101

REACTIONS (4)
  - Intentional product misuse [Not Recovered/Not Resolved]
  - Toxicity to various agents [Unknown]
  - Agitation [Unknown]
  - Disinhibition [Unknown]

NARRATIVE: CASE EVENT DATE: 20230924
